FAERS Safety Report 21308943 (Version 1)
Quarter: 2022Q3

REPORT INFORMATION
  Report Type: Spontaneous
  Country: AT (occurrence: AT)
  Receive Date: 20220908
  Receipt Date: 20220908
  Transmission Date: 20221027
  Serious: Yes (Other)
  Sender: FDA-Public Use
  Company Number: AT-Stemline Therapeutics, Inc.-2022ST000145

PATIENT
  Age: 77 Year
  Sex: Male

DRUGS (1)
  1. ELZONRIS [Suspect]
     Active Substance: TAGRAXOFUSP-ERZS
     Indication: Blastic plasmacytoid dendritic cell neoplasia
     Route: 042

REACTIONS (3)
  - Thrombocytopenia [Unknown]
  - Liver function test abnormal [Unknown]
  - Blood albumin decreased [Unknown]
